FAERS Safety Report 4707937-4 (Version None)
Quarter: 2005Q3

REPORT INFORMATION
  Report Type: 
  Country: None (occurrence: None)
  Receive Date: 20050705
  Receipt Date: 20050705
  Transmission Date: 20060218
  Serious: Yes (Disabling, Other)
  Sender: FDA-Public Use
  Company Number: None

PATIENT
  Age: 30 Year
  Sex: Female
  Weight: 68.0396 kg

DRUGS (4)
  1. CIPRO [Suspect]
     Indication: URINARY TRACT INFECTION
     Dosage: 2    PER DAY   ORAL
     Route: 048
     Dates: start: 20050303, end: 20050304
  2. ORAL CONTRACEPTIVES [Concomitant]
  3. PHENAZOPYRIDINE HCL TAB [Concomitant]
  4. IBUPROFEN [Concomitant]

REACTIONS (7)
  - ARTHRALGIA [None]
  - BURNING SENSATION [None]
  - JOINT SWELLING [None]
  - PAIN IN EXTREMITY [None]
  - PARAESTHESIA [None]
  - SHOULDER PAIN [None]
  - SWELLING [None]
